FAERS Safety Report 10019631 (Version 2)
Quarter: 2014Q1

REPORT INFORMATION
  Report Type: Spontaneous
  Country: US (occurrence: US)
  Receive Date: 20140318
  Receipt Date: 20140327
  Transmission Date: 20141002
  Serious: Yes (Hospitalization)
  Sender: FDA-Public Use
  Company Number: US-PFIZER INC-2014075687

PATIENT
  Age: 68 Year
  Sex: Male
  Weight: 102 kg

DRUGS (2)
  1. EFFEXOR XR [Suspect]
     Indication: DEPRESSION
     Dosage: 300 MG (150 MG X 2 CAPSULES), 1X/DAY
     Route: 048
  2. XANAX [Concomitant]
     Indication: ANXIETY
     Dosage: UNK, 3X/DAY

REACTIONS (1)
  - Urinary tract infection [Unknown]
